FAERS Safety Report 12380207 (Version 1)
Quarter: 2016Q2

REPORT INFORMATION
  Report Type: Spontaneous
  Country: US (occurrence: None)
  Receive Date: 20160517
  Receipt Date: 20160517
  Transmission Date: 20160815
  Serious: Yes (Disabling)
  Sender: FDA-Public Use
  Company Number: None

PATIENT
  Age: 65 Year
  Sex: Female
  Weight: 65.77 kg

DRUGS (9)
  1. CRESTOR [Concomitant]
     Active Substance: ROSUVASTATIN CALCIUM
  2. MAGNESIUM [Concomitant]
     Active Substance: MAGNESIUM
  3. TYLENOL [Concomitant]
     Active Substance: ACETAMINOPHEN
  4. LEVAQUIN [Suspect]
     Active Substance: LEVOFLOXACIN
     Indication: COUGH
     Dosage: 10 TABLET(S) ONCE A DAY TAKEN BY MOUTH
     Route: 048
     Dates: start: 20160224, end: 20160305
  5. ADVIL [Concomitant]
     Active Substance: IBUPROFEN
  6. HORMONE PATCH [Concomitant]
  7. VITAMIN D [Concomitant]
     Active Substance: CHOLECALCIFEROL
  8. SINGULAIR [Concomitant]
     Active Substance: MONTELUKAST SODIUM
  9. BENICAR [Concomitant]
     Active Substance: OLMESARTAN MEDOXOMIL

REACTIONS (4)
  - Inflammation [None]
  - Pain in extremity [None]
  - Muscular weakness [None]
  - Activities of daily living impaired [None]

NARRATIVE: CASE EVENT DATE: 20160224
